FAERS Safety Report 13880996 (Version 3)
Quarter: 2018Q1

REPORT INFORMATION
  Report Type: Spontaneous
  Country: US (occurrence: US)
  Receive Date: 20170818
  Receipt Date: 20180319
  Transmission Date: 20180508
  Serious: Yes (Death, Hospitalization, Other)
  Sender: FDA-Public Use
  Company Number: US-BRISTOL-MYERS SQUIBB COMPANY-BMS-2017-074101

PATIENT
  Age: 64 Year
  Sex: Male

DRUGS (1)
  1. YERVOY [Suspect]
     Active Substance: IPILIMUMAB
     Indication: MALIGNANT MELANOMA
     Dosage: 670 MG, UNK
     Route: 042
     Dates: start: 20170515, end: 20170621

REACTIONS (5)
  - Bronchopulmonary aspergillosis [Fatal]
  - Constipation [Unknown]
  - Hepatotoxicity [Fatal]
  - Hepatic failure [Fatal]
  - Inguinal hernia, obstructive [Unknown]

NARRATIVE: CASE EVENT DATE: 20170703
